FAERS Safety Report 8582634 (Version 4)
Quarter: 2013Q2

REPORT INFORMATION
  Report Type: Report from Study
  Country: AU (occurrence: AU)
  Receive Date: 20120529
  Receipt Date: 20130528
  Transmission Date: 20140414
  Serious: Yes (Other)
  Sender: FDA-Public Use
  Company Number: PHHY2012AU044855

PATIENT
  Age: 76 Year
  Sex: Male
  Weight: 74 kg

DRUGS (3)
  1. ACLASTA [Suspect]
     Indication: OSTEOPOROSIS
     Dosage: 5 MG, UNK
     Route: 042
     Dates: start: 20110204
  2. ACLASTA [Suspect]
     Dosage: 5 MG, UNK
     Route: 042
     Dates: start: 20120223
  3. BISPHOSPHONATES [Concomitant]
     Dosage: UNK UKN, UNK

REACTIONS (4)
  - Osteonecrosis of jaw [Recovered/Resolved]
  - Oral disorder [Unknown]
  - Erythema [Unknown]
  - Pain [Unknown]
